FAERS Safety Report 25112955 (Version 4)
Quarter: 2025Q4

REPORT INFORMATION
  Report Type: Spontaneous
  Country: US (occurrence: None)
  Receive Date: 20250324
  Receipt Date: 20251031
  Transmission Date: 20260117
  Serious: No
  Sender: UCB
  Company Number: US-UCBSA-2024068580

PATIENT
  Age: 21 Year

DRUGS (1)
  1. BIMZELX [Suspect]
     Active Substance: BIMEKIZUMAB-BKZX
     Indication: Psoriatic arthropathy
     Dosage: 320 MILLIGRAM, EV 4 WEEKS THEN 2 PENS EVERY 8 WEEKS

REACTIONS (7)
  - Injection site irritation [Unknown]
  - Pain [Unknown]
  - Fatigue [Recovered/Resolved]
  - Injection site pruritus [Recovered/Resolved]
  - Injection site bruising [Not Recovered/Not Resolved]
  - Injection site reaction [Unknown]
  - Injection site rash [Unknown]
